FAERS Safety Report 4964296-X (Version None)
Quarter: 2006Q2

REPORT INFORMATION
  Report Type: 
  Country: None (occurrence: None)
  Receive Date: 20060406
  Receipt Date: 19990325
  Transmission Date: 20061013
  Serious: Yes (Other)
  Sender: FDA-Public Use
  Company Number: CH/99/00013/EXELON

PATIENT
  Age: 72 Year
  Sex: Male

DRUGS (4)
  1. EXELON [Suspect]
     Indication: DISTURBANCE IN ATTENTION
     Dosage: 3 MG/DAY
     Route: 048
     Dates: start: 19980520, end: 19980910
  2. EXELON [Suspect]
     Route: 048
     Dates: start: 19981101, end: 19990301
  3. EXELON [Suspect]
     Route: 048
     Dates: start: 19990318, end: 19990701
  4. PM 1129 [Concomitant]

REACTIONS (10)
  - AMNESIA [None]
  - CRYING [None]
  - DISORIENTATION [None]
  - DIZZINESS [None]
  - DRUG WITHDRAWAL SYNDROME [None]
  - GASTROENTERITIS [None]
  - HEADACHE [None]
  - MEMORY IMPAIRMENT [None]
  - SLEEP DISORDER [None]
  - VISUAL DISTURBANCE [None]
